FAERS Safety Report 4562236-9 (Version None)
Quarter: 2005Q1

REPORT INFORMATION
  Report Type: 
  Country: None (occurrence: None)
  Receive Date: 20050124
  Receipt Date: 20050114
  Transmission Date: 20050727
  Serious: Yes (Other)
  Sender: FDA-Public Use
  Company Number: KII-2005-0014611

PATIENT
  Age: 26 Year
  Sex: Male

DRUGS (4)
  1. OXYCONTIN [Suspect]
     Dosage: ORAL
     Route: 048
  2. METHADON HCL TAB [Suspect]
     Dosage: ORAL
     Route: 048
  3. COCAINE (COCAINE) [Suspect]
     Dosage: INHALATION
     Route: 055
  4. ETHANOL (ETHANOL) [Suspect]
     Dosage: ORAL
     Route: 048

REACTIONS (13)
  - AGGRESSION [None]
  - BRADYCARDIA [None]
  - COMA [None]
  - CONFUSIONAL STATE [None]
  - CYANOSIS [None]
  - FLUSHING [None]
  - HYPOTHERMIA [None]
  - MULTIPLE DRUG OVERDOSE [None]
  - OXYGEN SATURATION DECREASED [None]
  - PCO2 INCREASED [None]
  - PO2 DECREASED [None]
  - POLYSUBSTANCE ABUSE [None]
  - VOMITING [None]
